FAERS Safety Report 8306318-4 (Version None)
Quarter: 2012Q2

REPORT INFORMATION
  Report Type: 
  Country: None (occurrence: None)
  Receive Date: 20120423
  Receipt Date: 20120410
  Transmission Date: 20120825
  Serious: Yes (Other)
  Sender: FDA-Public Use
  Company Number: FR-BAXTER-2012BAX002715

PATIENT
  Sex: Female

DRUGS (1)
  1. PHYSIONEAL 40 GLUCOSE 1,36%, SOLUTION POUR DIALYSE PERITONEALE [Suspect]
     Route: 033

REACTIONS (2)
  - EOSINOPHILIA [None]
  - PERITONEAL CLOUDY EFFLUENT [None]
